FAERS Safety Report 16346338 (Version 2)
Quarter: 2019Q2

REPORT INFORMATION
  Report Type: Spontaneous
  Country: US (occurrence: US)
  Receive Date: 20190523
  Receipt Date: 20190528
  Transmission Date: 20190711
  Serious: No
  Sender: FDA-Public Use
  Company Number: US-PFIZER INC-2019214328

PATIENT
  Sex: Male

DRUGS (1)
  1. TOVIAZ [Suspect]
     Active Substance: FESOTERODINE FUMARATE
     Dosage: 4 MG, DAILY

REACTIONS (5)
  - Drug ineffective [Unknown]
  - Arthralgia [Unknown]
  - Headache [Unknown]
  - Dry mouth [Unknown]
  - Dizziness [Unknown]
